FAERS Safety Report 26144645 (Version 1)
Quarter: 2025Q4

REPORT INFORMATION
  Report Type: Spontaneous
  Country: EU (occurrence: EU)
  Receive Date: 20251211
  Receipt Date: 20251211
  Transmission Date: 20260117
  Serious: Yes (Other)
  Sender: CHEPLAPHARM
  Company Number: None

PATIENT
  Age: 40 Year
  Sex: Male

DRUGS (7)
  1. QUETIAPINE [Suspect]
     Active Substance: QUETIAPINE
     Indication: Product used for unknown indication
     Dosage: DAILY DOSE: 1 DOSAGE FORM
     Route: 048
     Dates: start: 202502
  2. QUETIAPINE [Suspect]
     Active Substance: QUETIAPINE
     Indication: Product used for unknown indication
     Dosage: QUETIAPINE LP 50 4 TABLETS AT BEDTIME?DAILY DOSE: 4 DOSAGE FORM
  3. SERTRALINE HYDROCHLORIDE [Concomitant]
     Active Substance: SERTRALINE HYDROCHLORIDE
     Indication: Product used for unknown indication
     Dosage: SERTRALINE 50 IN THE MORNING?DAILY DOSE: 1 DOSAGE FORM
     Route: 048
  4. XANAX [Concomitant]
     Active Substance: ALPRAZOLAM
     Indication: Product used for unknown indication
     Dosage: DAILY DOSE: 1 DOSAGE FORM
     Route: 048
  5. XANAX [Concomitant]
     Active Substance: ALPRAZOLAM
     Indication: Product used for unknown indication
     Dosage: XANAX 0.25: 1:1:1?DAILY DOSE: 3 DOSAGE FORM
     Route: 048
  6. CHOLECALCIFEROL [Concomitant]
     Active Substance: CHOLECALCIFEROL
     Indication: Product used for unknown indication
     Dosage: DAILY DOSE: 1 DOSAGE FORM
     Route: 048
  7. CHOLECALCIFEROL [Concomitant]
     Active Substance: CHOLECALCIFEROL
     Indication: Product used for unknown indication
     Dosage: ZYMAD 10,000 UNITS 2 DROPS IN THE MORNING?DAILY DOSE: 2 DROP
     Route: 048

REACTIONS (6)
  - Hypertensive crisis [Recovered/Resolved]
  - Tachycardia [Recovered/Resolved]
  - Hyperhidrosis [Recovered/Resolved]
  - Crying [Unknown]
  - Anxiety [Unknown]
  - Mydriasis [Unknown]

NARRATIVE: CASE EVENT DATE: 20250701
